FAERS Safety Report 14931150 (Version 2)
Quarter: 2018Q2

REPORT INFORMATION
  Report Type: Spontaneous
  Country: US (occurrence: US)
  Receive Date: 20180524
  Receipt Date: 20180608
  Transmission Date: 20180711
  Serious: No
  Sender: FDA-Public Use
  Company Number: US-JNJFOC-20180504469

PATIENT
  Age: 53 Year
  Sex: Female
  Weight: 68.04 kg

DRUGS (3)
  1. WOMENS ROGAINE UNSCENTED [Suspect]
     Active Substance: MINOXIDIL
     Route: 061
  2. ESTROGEN [Concomitant]
     Active Substance: ESTROGENS
     Indication: HORMONE REPLACEMENT THERAPY
     Route: 065
  3. WOMENS ROGAINE UNSCENTED [Suspect]
     Active Substance: MINOXIDIL
     Indication: ALOPECIA
     Dosage: 1/2 CAPFUL
     Route: 061
     Dates: start: 20180123

REACTIONS (2)
  - Drug ineffective [Unknown]
  - Alopecia [Not Recovered/Not Resolved]

NARRATIVE: CASE EVENT DATE: 20180123
